FAERS Safety Report 6314494-8 (Version None)
Quarter: 2009Q3

REPORT INFORMATION
  Report Type: 
  Country: None (occurrence: None)
  Receive Date: 20090817
  Receipt Date: 20090817
  Transmission Date: 20100115
  Serious: Yes (Other)
  Sender: FDA-Public Use
  Company Number: None

PATIENT
  Age: 50 Year
  Sex: Female
  Weight: 54.8852 kg

DRUGS (2)
  1. CYMBALTA [Suspect]
     Indication: DEPRESSION
     Dosage: ONE DAILY PO
     Route: 048
     Dates: start: 20080315, end: 20090715
  2. CYMBALTA [Suspect]
     Indication: PAIN
     Dosage: ONE DAILY PO
     Route: 048
     Dates: start: 20080315, end: 20090715

REACTIONS (12)
  - BLOOD PRESSURE ABNORMAL [None]
  - DIARRHOEA [None]
  - DRUG DEPENDENCE [None]
  - DRUG EFFECT DECREASED [None]
  - FEAR [None]
  - FEELING ABNORMAL [None]
  - HEADACHE [None]
  - HEART RATE ABNORMAL [None]
  - MUSCLE SPASMS [None]
  - NAUSEA [None]
  - SUICIDAL IDEATION [None]
  - VOMITING [None]
